FAERS Safety Report 4358189-9 (Version None)
Quarter: 2004Q2

REPORT INFORMATION
  Report Type: 
  Country: None (occurrence: None)
  Receive Date: 20040513
  Receipt Date: 20040513
  Transmission Date: 20050107
  Serious: No
  Sender: FDA-Public Use
  Company Number: None

PATIENT
  Sex: Male
  Weight: 97.5234 kg

DRUGS (12)
  1. OXACILLIN [Suspect]
     Dosage: 2 GM EVERY 6 HO INTRAVENOUS
     Route: 042
  2. OXACILLIN [Suspect]
     Dosage: 2 GM EVERY 6 HO INTRAVENOUS
     Route: 042
  3. CELEBREX [Concomitant]
  4. NYSTATIN SUSP [Concomitant]
  5. AMBIEN [Concomitant]
  6. XANAX [Concomitant]
  7. TYLENOL [Concomitant]
  8. DULCOLAX SUPP [Concomitant]
  9. TYLOX [Concomitant]
  10. PRAVACHOL [Concomitant]
  11. FOLGARD [Concomitant]
  12. TOPROL-XL [Concomitant]

REACTIONS (1)
  - RASH [None]
